FAERS Safety Report 7639214-6 (Version None)
Quarter: 2011Q3

REPORT INFORMATION
  Report Type: 
  Country: None (occurrence: None)
  Receive Date: 20110725
  Receipt Date: 20110725
  Transmission Date: 20111222
  Serious: Yes (Hospitalization)
  Sender: FDA-Public Use
  Company Number: None

PATIENT
  Age: 67 Year
  Sex: Male

DRUGS (1)
  1. METHOTREXATE [Suspect]
     Indication: PAIN
     Dosage: 10MG PO
     Route: 048
     Dates: start: 20110502, end: 20110721

REACTIONS (8)
  - CELLULITIS [None]
  - BLISTER INFECTED [None]
  - OEDEMA PERIPHERAL [None]
  - ERYTHEMA [None]
  - RASH [None]
  - PULSE ABSENT [None]
  - SENSORY LOSS [None]
  - BLISTER [None]
